FAERS Safety Report 13687719 (Version 2)
Quarter: 2017Q3

REPORT INFORMATION
  Report Type: Report from Study
  Country: AR (occurrence: AR)
  Receive Date: 20170625
  Receipt Date: 20170709
  Transmission Date: 20171127
  Serious: Yes (Hospitalization, Other)
  Sender: FDA-Public Use
  Company Number: PHHY2017AR092324

PATIENT
  Sex: Male

DRUGS (1)
  1. COSENTYX [Suspect]
     Active Substance: SECUKINUMAB
     Indication: ANKYLOSING SPONDYLITIS
     Dosage: 150 MG, UNK ( EVERY 15 DAYS)
     Route: 065
     Dates: start: 20170130, end: 20170504

REACTIONS (3)
  - Fistula [Recovering/Resolving]
  - Infection [Recovering/Resolving]
  - Drug prescribing error [Unknown]
